FAERS Safety Report 7207531-X (Version None)
Quarter: 2010Q4

REPORT INFORMATION
  Report Type: 
  Country: None (occurrence: None)
  Receive Date: 20101221
  Receipt Date: 20101208
  Transmission Date: 20110411
  Serious: Yes (Life-Threatening)
  Sender: FDA-Public Use
  Company Number: IDA-00467

PATIENT
  Sex: Female

DRUGS (4)
  1. PROPRANOLOL [Suspect]
     Dosage: DOSE TEXT: 1000 MG, 25 TABLETS OF 40 MG ORAL FORMULATION: TABLET
     Route: 048
     Dates: start: 20100909, end: 20100909
  2. ANAFRANIL [Suspect]
     Dosage: DOSE TEXT: 1500 MG, 20 TABLETS OF 75 MG ORAL FORMULATION: TABLET
     Route: 048
     Dates: start: 20100909, end: 20100909
  3. TERALITHE (LITHIUM CARBONATE) STRENGTH: 400 MG [Suspect]
     Dosage: DOSE TEXT 8000 MG, 20 TABLETS OF 400 MG ORAL FORMULATION: TABLET
     Route: 048
     Dates: start: 20100909, end: 20100909
  4. IMOVANE (ZOPICLONE) STRENGTH: 7.5MG [Suspect]
     Dosage: DOSE TEXT: 105 MG, 14 TABLETS OF 7.5 MG ORAL FORMULATION: TABLET
     Route: 048
     Dates: start: 20100909, end: 20100909

REACTIONS (5)
  - COMA [None]
  - DRUG TOXICITY [None]
  - HYPOVOLAEMIA [None]
  - MIOSIS [None]
  - MULTIPLE DRUG OVERDOSE INTENTIONAL [None]
